FAERS Safety Report 19256884 (Version 2)
Quarter: 2022Q3

REPORT INFORMATION
  Report Type: Other
  Country: None (occurrence: US)
  Receive Date: 20210513
  Receipt Date: 20220927
  Transmission Date: 20221027
  Serious: Yes (Other)
  Sender: FDA-Public Use
  Company Number: US-SUNSTAR AMERICAS INC.-2110523

PATIENT

DRUGS (1)
  1. PAROEX [Suspect]
     Active Substance: CHLORHEXIDINE GLUCONATE

REACTIONS (1)
  - Respiratory disorder [Unknown]
